FAERS Safety Report 18450544 (Version 1)
Quarter: 2020Q4

REPORT INFORMATION
  Report Type: Spontaneous
  Country: US (occurrence: US)
  Receive Date: 20201102
  Receipt Date: 20201102
  Transmission Date: 20210114
  Serious: No
  Sender: FDA-Public Use
  Company Number: US-LUPIN PHARMACEUTICALS INC.-2020-05836

PATIENT
  Age: 57 Year
  Sex: Male

DRUGS (6)
  1. LIDOCAINE. [Concomitant]
     Active Substance: LIDOCAINE
     Dosage: 1 MG/MIN; DECREASED TO 1 MG/MIN
     Route: 041
  2. LEVETIRACETAM. [Suspect]
     Active Substance: LEVETIRACETAM
     Indication: MYOCLONUS
     Dosage: 500 MILLIGRAM
     Route: 048
  3. LIDOCAINE. [Concomitant]
     Active Substance: LIDOCAINE
     Dosage: 2 MG/MIN; DECREASED TO 1 MG/MIN
     Route: 041
  4. AMIODARONE [Concomitant]
     Active Substance: AMIODARONE
     Dosage: 400 MILLIGRAM, TID
     Route: 065
  5. AMIODARONE [Concomitant]
     Active Substance: AMIODARONE
     Indication: VENTRICULAR TACHYCARDIA
     Dosage: 400 MILLIGRAM, BID
     Route: 065
  6. LIDOCAINE. [Concomitant]
     Active Substance: LIDOCAINE
     Indication: VENTRICULAR TACHYCARDIA
     Dosage: 100 MILLIGRAM
     Route: 065

REACTIONS (2)
  - Off label use [Unknown]
  - Drug effective for unapproved indication [Unknown]
